FAERS Safety Report 11376503 (Version 2)
Quarter: 2015Q3

REPORT INFORMATION
  Report Type: Spontaneous
  Country: DE (occurrence: DE)
  Receive Date: 20150813
  Receipt Date: 20150923
  Transmission Date: 20151125
  Serious: Yes (Other)
  Sender: FDA-Public Use
  Company Number: DE-BAYER-2015-368525

PATIENT
  Age: 37 Year
  Sex: Female
  Weight: 107 kg

DRUGS (6)
  1. L THYROXIN [Concomitant]
     Active Substance: LEVOTHYROXINE SODIUM
     Dosage: 75 ?G, UNK
  2. FOLIC ACID. [Concomitant]
     Active Substance: FOLIC ACID
  3. DEPO-PROGESTIN [Concomitant]
  4. ESTRADIOL. [Concomitant]
     Active Substance: ESTRADIOL
  5. GADOVIST [Suspect]
     Active Substance: GADOBUTROL
     Indication: NUCLEAR MAGNETIC RESONANCE IMAGING BRAIN
     Dosage: 10 ML, UNK
     Dates: start: 20150618, end: 20150618
  6. GADOVIST [Suspect]
     Active Substance: GADOBUTROL
     Indication: PROLACTINOMA

REACTIONS (3)
  - Maternal exposure during pregnancy [None]
  - Abortion early [None]
  - Vaginal haemorrhage [None]

NARRATIVE: CASE EVENT DATE: 20150618
